FAERS Safety Report 4880285-8 (Version None)
Quarter: 2006Q1

REPORT INFORMATION
  Report Type: 
  Country: None (occurrence: None)
  Receive Date: 20060111
  Receipt Date: 20051229
  Transmission Date: 20060701
  Serious: Yes (Other)
  Sender: FDA-Public Use
  Company Number: 2006001015

PATIENT
  Sex: Male

DRUGS (2)
  1. VIAGRA [Suspect]
     Indication: ILL-DEFINED DISORDER
     Dosage: 25 MG (25 MG, AS NECESSARY)
  2. DIURETICS (DIURETICS) [Concomitant]

REACTIONS (4)
  - DRUG INEFFECTIVE [None]
  - FEAR [None]
  - HYPERTENSION [None]
  - PROSTATE CANCER [None]
